FAERS Safety Report 24883264 (Version 1)
Quarter: 2025Q1

REPORT INFORMATION
  Report Type: Spontaneous
  Country: US (occurrence: US)
  Receive Date: 20250124
  Receipt Date: 20250124
  Transmission Date: 20250408
  Serious: Yes (Other)
  Sender: RANBAXY
  Company Number: US-SUN PHARMACEUTICAL INDUSTRIES LTD-2025R1-490181

PATIENT
  Age: 76 Year
  Sex: Female

DRUGS (6)
  1. LOPERAMIDE [Suspect]
     Active Substance: LOPERAMIDE
     Indication: Diarrhoea
     Route: 065
  2. LOPERAMIDE [Suspect]
     Active Substance: LOPERAMIDE
     Indication: Immunodeficiency
  3. DICYCLOMINE [Suspect]
     Active Substance: DICYCLOMINE HYDROCHLORIDE
     Indication: Diarrhoea
     Route: 065
  4. DICYCLOMINE [Suspect]
     Active Substance: DICYCLOMINE HYDROCHLORIDE
     Indication: Immunodeficiency
  5. PSYLLIUM [Suspect]
     Active Substance: PLANTAGO SEED
     Indication: Diarrhoea
     Route: 065
  6. PSYLLIUM [Suspect]
     Active Substance: PLANTAGO SEED
     Indication: Immunodeficiency

REACTIONS (1)
  - Therapy non-responder [Unknown]
